FAERS Safety Report 9932787 (Version 4)
Quarter: 2016Q2

REPORT INFORMATION
  Report Type: Spontaneous
  Country: US (occurrence: US)
  Receive Date: 20140228
  Receipt Date: 20160630
  Transmission Date: 20160815
  Serious: Yes (Other)
  Sender: FDA-Public Use
  Company Number: US-GLAXOSMITHKLINE-A1028197A

PATIENT
  Age: 18 Year
  Sex: Male

DRUGS (8)
  1. LAMICTAL [Suspect]
     Active Substance: LAMOTRIGINE
     Indication: SEIZURE
     Dosage: 200 MG, U
     Route: 048
     Dates: start: 20130715
  2. LAMICTAL XR [Suspect]
     Active Substance: LAMOTRIGINE
     Dosage: 200 MG, U
  3. LAMICTAL [Suspect]
     Active Substance: LAMOTRIGINE
     Dosage: 25 MG, U
     Dates: start: 20140128
  4. LAMICTAL XR [Suspect]
     Active Substance: LAMOTRIGINE
     Indication: EPILEPSY
     Dosage: 600 MG, QD
     Route: 048
     Dates: start: 20130711
  5. ALEVE [Suspect]
     Active Substance: NAPROXEN SODIUM
     Indication: HEADACHE
     Dosage: 2 DF, SINGLE
     Dates: start: 20160628, end: 20160628
  6. LAMOTRIGINE. [Suspect]
     Active Substance: LAMOTRIGINE
     Indication: NERVOUS SYSTEM DISORDER
     Dosage: UNK UNK, U
  7. LAMICTAL [Suspect]
     Active Substance: LAMOTRIGINE
     Indication: EPILEPSY
     Dosage: 100 MG, U
     Route: 048
     Dates: start: 20111216
  8. LAMICTAL [Suspect]
     Active Substance: LAMOTRIGINE
     Dosage: 300 MG, U

REACTIONS (10)
  - Drug ineffective [Unknown]
  - Road traffic accident [Unknown]
  - Insomnia [Recovered/Resolved]
  - Loss of consciousness [Unknown]
  - Haematoma [Unknown]
  - Headache [Recovered/Resolved]
  - Drooling [Recovered/Resolved]
  - Eye contusion [Unknown]
  - Seizure [Recovered/Resolved]
  - Generalised tonic-clonic seizure [Unknown]

NARRATIVE: CASE EVENT DATE: 20140416
